FAERS Safety Report 12235449 (Version 1)
Quarter: 2016Q2

REPORT INFORMATION
  Report Type: Spontaneous
  Country: US (occurrence: US)
  Receive Date: 20160404
  Receipt Date: 20160404
  Transmission Date: 20160815
  Serious: Yes (Other)
  Sender: FDA-Public Use
  Company Number: US-BAYER-2016-058761

PATIENT
  Sex: Male

DRUGS (3)
  1. BAYER GENUINE ASPIRIN [Suspect]
     Active Substance: ASPIRIN
     Indication: ISCHAEMIC HEART DISEASE PROPHYLAXIS
     Dosage: UNK, QD
     Route: 048
     Dates: start: 1997
  2. BAYER EXTRA STRENGTH ASPIRIN [Suspect]
     Active Substance: ASPIRIN
  3. BAYER [Suspect]
     Active Substance: ASPIRIN
     Indication: ISCHAEMIC HEART DISEASE PROPHYLAXIS
     Dosage: UNK

REACTIONS (2)
  - Angina pectoris [None]
  - Product use issue [None]
